FAERS Safety Report 8789322 (Version 1)
Quarter: 2012Q4

REPORT INFORMATION
  Report Type: Spontaneous
  Country: US (occurrence: None)
  Receive Date: 20120910
  Receipt Date: 20120910
  Transmission Date: 20130627
  Serious: Yes (Other)
  Sender: FDA-Public Use
  Company Number: None

PATIENT
  Age: 38 Year
  Sex: Female
  Weight: 59.88 kg

DRUGS (2)
  1. PROGESTERONE [Suspect]
     Indication: DYSFUNCTIONAL UTERINE BLEEDING
     Route: 048
     Dates: start: 20120801, end: 20120808
  2. PROGESTERONE [Suspect]
     Indication: MENORRHAGIA
     Route: 048
     Dates: start: 20120801, end: 20120808

REACTIONS (5)
  - Headache [None]
  - Diarrhoea [None]
  - Muscle spasms [None]
  - Product substitution issue [None]
  - Abnormal dreams [None]
